FAERS Safety Report 23600380 (Version 3)
Quarter: 2024Q1

REPORT INFORMATION
  Report Type: Spontaneous
  Country: AU (occurrence: AU)
  Receive Date: 20240306
  Receipt Date: 20240321
  Transmission Date: 20240409
  Serious: Yes (Other)
  Sender: FDA-Public Use
  Company Number: AU-CURIUM-2024000040

PATIENT
  Sex: Female

DRUGS (2)
  1. TECHNESCAN HDP [Suspect]
     Active Substance: TECHNETIUM TC-99M OXIDRONATE
     Indication: Radioisotope scan
     Route: 051
     Dates: start: 20231212, end: 20231212
  2. Gentech Generator, 120 GBq [Concomitant]
     Indication: Radioisotope scan
     Route: 051
     Dates: start: 20231212, end: 20231212

REACTIONS (3)
  - Product sterility issue [Recovered/Resolved]
  - Poor quality product administered [Recovered/Resolved]
  - Pneumonia mycoplasmal [Recovered/Resolved]

NARRATIVE: CASE EVENT DATE: 20231212
